FAERS Safety Report 8436558-5 (Version None)
Quarter: 2012Q2

REPORT INFORMATION
  Report Type: 
  Country: None (occurrence: None)
  Receive Date: 20120614
  Receipt Date: 20120601
  Transmission Date: 20120825
  Serious: No
  Sender: FDA-Public Use
  Company Number: US-ASTRAZENECA-2012SE20742

PATIENT
  Age: 54 Year
  Sex: Female
  Weight: 105.2 kg

DRUGS (7)
  1. VITAMIN D [Concomitant]
  2. CRESTOR [Suspect]
     Indication: HYPERLIPIDAEMIA
     Route: 048
     Dates: start: 20120202
  3. ZOLOFT [Concomitant]
  4. METFORMIN HCL [Concomitant]
  5. CALCIUM [Concomitant]
  6. LISINOPRIL HYDROCHLORITHIAZIDE [Concomitant]
  7. OMEPRAZOLE [Concomitant]

REACTIONS (7)
  - VOMITING [None]
  - OBESITY [None]
  - COUGH [None]
  - DYSLIPIDAEMIA [None]
  - GLUCOSE TOLERANCE IMPAIRED [None]
  - HYPERTENSION [None]
  - OSTEOPOROSIS [None]
